FAERS Safety Report 4898731-2 (Version None)
Quarter: 2006Q1

REPORT INFORMATION
  Report Type: 
  Country: None (occurrence: None)
  Receive Date: 20060127
  Receipt Date: 20060117
  Transmission Date: 20060701
  Serious: Yes (Other)
  Sender: FDA-Public Use
  Company Number: 2006009824

PATIENT
  Age: 46 Year
  Sex: Female
  Weight: 48.5349 kg

DRUGS (2)
  1. DEPO-PROVERA [Suspect]
     Indication: MENSTRUAL DISCOMFORT
     Dosage: SEE IMAGE
     Dates: start: 20030301, end: 20030301
  2. DEPO-PROVERA [Suspect]
     Indication: MENSTRUAL DISCOMFORT
     Dosage: SEE IMAGE
     Dates: start: 20051025, end: 20051025

REACTIONS (3)
  - AMENORRHOEA [None]
  - FIBROMYALGIA [None]
  - OSTEOPOROSIS [None]
